FAERS Safety Report 5648708-4 (Version None)
Quarter: 2008Q1

REPORT INFORMATION
  Report Type: 
  Country: None (occurrence: None)
  Receive Date: 20080303
  Receipt Date: 20080303
  Transmission Date: 20080703
  Serious: Yes (Disabling)
  Sender: FDA-Public Use
  Company Number: None

PATIENT
  Age: 55 Year
  Sex: Female
  Weight: 6.3504 kg

DRUGS (1)
  1. CHLORAPREP [Suspect]
     Indication: SURGERY
     Dosage: ONE TIME-SKIN PREP OTHER
     Route: 050
     Dates: start: 20080218, end: 20080218

REACTIONS (2)
  - APPLICATION SITE RASH [None]
  - POST PROCEDURAL COMPLICATION [None]
